FAERS Safety Report 17375028 (Version 1)
Quarter: 2020Q1

REPORT INFORMATION
  Report Type: Spontaneous
  Country: US (occurrence: US)
  Receive Date: 20200204
  Receipt Date: 20200204
  Transmission Date: 20200409
  Serious: Yes (Hospitalization)
  Sender: FDA-Public Use
  Company Number: None

PATIENT
  Age: 76 Year
  Sex: Female

DRUGS (7)
  1. PANTOPRAZOLE TAB 40 MG [Concomitant]
  2. HUMIRA [Suspect]
     Active Substance: ADALIMUMAB
     Indication: POLYARTHRITIS
     Dosage: ?          OTHER FREQUENCY:EVERY 2 WEEKS;?
     Route: 058
     Dates: start: 20181130
  3. ALBUTEROL AER HFA [Concomitant]
  4. BUPROPION HCL TAB 300 MG XL [Concomitant]
  5. FUROSEMIDE TAB 40 MG [Concomitant]
  6. METOPROLOL SUC TB 50 MG ER [Concomitant]
  7. CYCLOBENAZEPRINE TAB 5 MG [Concomitant]

REACTIONS (3)
  - Dysstasia [None]
  - Grip strength decreased [None]
  - Peripheral swelling [None]
